FAERS Safety Report 19694263 (Version 1)
Quarter: 2021Q3

REPORT INFORMATION
  Report Type: Spontaneous
  Country: US (occurrence: US)
  Receive Date: 20210813
  Receipt Date: 20210813
  Transmission Date: 20211014
  Serious: Yes (Hospitalization, Other)
  Sender: FDA-Public Use
  Company Number: US-LUPIN PHARMACEUTICALS INC.-2021-14467

PATIENT
  Age: 33 Year
  Sex: Male

DRUGS (6)
  1. SUBOXONE [Suspect]
     Active Substance: BUPRENORPHINE HYDROCHLORIDE\NALOXONE HYDROCHLORIDE
     Indication: PRODUCT USED FOR UNKNOWN INDICATION
     Dosage: UNK
     Route: 065
  2. CEFAZOLINE [Suspect]
     Active Substance: CEFAZOLIN SODIUM
     Indication: ENDOCARDITIS
     Dosage: UNK
     Route: 065
  3. VANCOMYCIN [Suspect]
     Active Substance: VANCOMYCIN
     Indication: ANTIBIOTIC PROPHYLAXIS
     Dosage: UNK
     Route: 065
  4. RIFAMPIN. [Suspect]
     Active Substance: RIFAMPIN
     Indication: ENDOCARDITIS
     Dosage: UNK
     Route: 065
  5. GENTAMICIN. [Suspect]
     Active Substance: GENTAMICIN
     Indication: ENDOCARDITIS
     Dosage: UNK
     Route: 065
  6. WARFARIN [Concomitant]
     Active Substance: WARFARIN
     Indication: ANTICOAGULANT THERAPY
     Dosage: UNK
     Route: 065

REACTIONS (4)
  - Cardiac valve vegetation [Recovered/Resolved]
  - Arteritis [Recovering/Resolving]
  - Endocarditis candida [Recovering/Resolving]
  - Infective aneurysm [Recovered/Resolved]
